FAERS Safety Report 6945218-9 (Version None)
Quarter: 2010Q3

REPORT INFORMATION
  Report Type: 
  Country: None (occurrence: None)
  Receive Date: 20100827
  Receipt Date: 20100610
  Transmission Date: 20110219
  Serious: No
  Sender: FDA-Public Use
  Company Number: US-KINGPHARMUSA00001-K201000730

PATIENT
  Age: 86 Year
  Sex: Female
  Weight: 53.515 kg

DRUGS (9)
  1. FLECTOR [Suspect]
     Indication: ARTHRALGIA
     Dosage: 1 PATCH, BID
     Route: 061
     Dates: start: 20100501
  2. SYNTHROID [Concomitant]
     Dosage: UNK, QAM
  3. DIOVAN [Concomitant]
  4. CHONDROITIN SODIUM SULFATE W/GLUCOSAMINE HCL [Concomitant]
  5. FOSAMAX [Concomitant]
     Dosage: UNK, QW
  6. CALTRATE [Concomitant]
  7. MAGNESIUM [Concomitant]
     Indication: MUSCLE SPASMS
  8. ASPIRIN [Concomitant]
     Dosage: 81 MG, QAM
  9. ANTISPASMODICS/ ANTICHOLINERGICS [Concomitant]
     Indication: IRRITABLE BOWEL SYNDROME

REACTIONS (1)
  - APPLICATION SITE ERYTHEMA [None]
